FAERS Safety Report 10088972 (Version 3)
Quarter: 2014Q2

REPORT INFORMATION
  Report Type: Report from Study
  Country: CA (occurrence: CA)
  Receive Date: 20140421
  Receipt Date: 20140526
  Transmission Date: 20141212
  Serious: Yes (Death, Hospitalization, Other)
  Sender: FDA-Public Use
  Company Number: PHHY2013CA149752

PATIENT
  Age: 72 Year
  Sex: Female

DRUGS (3)
  1. ZOMETA [Suspect]
     Indication: BREAST CANCER METASTATIC
     Dosage: 4 MG, EVERY 4 WEEKS
     Route: 042
     Dates: start: 20131209
  2. ZOMETA [Suspect]
     Dosage: 3.5 MG, EVERY 4 WEEKS
     Route: 042
     Dates: end: 20140402
  3. TAMOXIFEN [Concomitant]
     Dosage: UNK UKN, UNK

REACTIONS (11)
  - Death [Fatal]
  - Coma [Unknown]
  - Blood pressure increased [Unknown]
  - Vessel puncture site bruise [Unknown]
  - Vasodilatation [Recovering/Resolving]
  - Injection site bruising [Unknown]
  - Breast swelling [Unknown]
  - Heart rate increased [Unknown]
  - Anxiety [Unknown]
  - Chest discomfort [Not Recovered/Not Resolved]
  - Dyspnoea [Not Recovered/Not Resolved]
